FAERS Safety Report 12777947 (Version 1)
Quarter: 2016Q3

REPORT INFORMATION
  Report Type: Spontaneous
  Country: US (occurrence: US)
  Receive Date: 20160924
  Receipt Date: 20160924
  Transmission Date: 20161109
  Serious: No
  Sender: FDA-Public Use
  Company Number: US-JAZZ-2016-US-010706

PATIENT
  Age: 42 Year
  Sex: Female

DRUGS (24)
  1. CINNAMON. [Concomitant]
     Active Substance: CINNAMON
  2. GABAPENTIN. [Concomitant]
     Active Substance: GABAPENTIN
  3. MAGNESIUM OXIDE. [Concomitant]
     Active Substance: MAGNESIUM OXIDE
  4. GLUCOSAMINE COMPLEX [Concomitant]
     Active Substance: GLUCOSAMINE\GLUCOSAMINE SULFATE
  5. PROBIOTIC [Concomitant]
     Active Substance: PROBIOTICS NOS
  6. ACYCLOVIR. [Concomitant]
     Active Substance: ACYCLOVIR
  7. CITALOPRAM [Concomitant]
     Active Substance: CITALOPRAM HYDROBROMIDE
  8. ASPIRIN. [Concomitant]
     Active Substance: ASPIRIN
  9. VITAMIN C [Concomitant]
     Active Substance: ASCORBIC ACID
  10. XYREM [Suspect]
     Active Substance: SODIUM OXYBATE
     Dosage: 2.25 G, QD
     Route: 048
     Dates: start: 20160609
  11. NOVOLOG [Concomitant]
     Active Substance: INSULIN ASPART
  12. PREDNISONE. [Concomitant]
     Active Substance: PREDNISONE
  13. OMEPRAZOLE. [Concomitant]
     Active Substance: OMEPRAZOLE
  14. WOMEN^S DAILY [Concomitant]
  15. ATORVASTATIN [Concomitant]
     Active Substance: ATORVASTATIN
  16. PROLIA [Concomitant]
     Active Substance: DENOSUMAB
  17. VALIUM [Concomitant]
     Active Substance: DIAZEPAM
  18. SODIUM BICARBONATE. [Concomitant]
     Active Substance: SODIUM BICARBONATE
  19. DIFLUCAN [Concomitant]
     Active Substance: FLUCONAZOLE
  20. KRILL OIL [Concomitant]
     Active Substance: DIETARY SUPPLEMENT
  21. XYREM [Suspect]
     Active Substance: SODIUM OXYBATE
     Indication: SLEEP DISORDER
     Dosage: 2.25 G, BID
     Route: 048
     Dates: start: 201606, end: 201606
  22. VITAMIN D [Concomitant]
     Active Substance: CHOLECALCIFEROL
  23. LYRICA [Concomitant]
     Active Substance: PREGABALIN
  24. MYCOPHENOLATE MOFETIL. [Concomitant]
     Active Substance: MYCOPHENOLATE MOFETIL

REACTIONS (2)
  - Flatulence [Unknown]
  - Tremor [Unknown]

NARRATIVE: CASE EVENT DATE: 201606
